FAERS Safety Report 5389544-6 (Version None)
Quarter: 2007Q3

REPORT INFORMATION
  Report Type: 
  Country: None (occurrence: None)
  Receive Date: 20070717
  Receipt Date: 20070705
  Transmission Date: 20080115
  Serious: Yes (Other)
  Sender: FDA-Public Use
  Company Number: US-PFIZER INC-2007035818

PATIENT
  Sex: Female
  Weight: 113.4 kg

DRUGS (1)
  1. ZITHROMAX [Suspect]
     Indication: UPPER RESPIRATORY TRACT INFECTION
     Route: 042

REACTIONS (7)
  - BURNING SENSATION [None]
  - DRUG ADMINISTRATION ERROR [None]
  - INJECTION SITE NODULE [None]
  - NAUSEA [None]
  - PAIN [None]
  - SWELLING [None]
  - SYNCOPE [None]
